FAERS Safety Report 9222688 (Version 2)
Quarter: 2013Q2

REPORT INFORMATION
  Report Type: Spontaneous
  Country: US (occurrence: US)
  Receive Date: 20130410
  Receipt Date: 20130506
  Transmission Date: 20140414
  Serious: Yes (Death)
  Sender: FDA-Public Use
  Company Number: US-ROCHE-1209735

PATIENT
  Age: 72 Year
  Sex: Male

DRUGS (1)
  1. ACTILYSE [Suspect]
     Indication: ISCHAEMIC STROKE
     Route: 042

REACTIONS (5)
  - Carotid artery occlusion [Fatal]
  - Cerebral infarction [Fatal]
  - Coma [Fatal]
  - Quadriplegia [Fatal]
  - Oxygen saturation decreased [Fatal]
